FAERS Safety Report 5196573-4 (Version None)
Quarter: 2006Q4

REPORT INFORMATION
  Report Type: 
  Country: None (occurrence: None)
  Receive Date: 20061228
  Receipt Date: 20061228
  Transmission Date: 20070319
  Serious: Yes (Death)
  Sender: FDA-Public Use
  Company Number: None

PATIENT
  Age: 32 Year
  Sex: Male
  Weight: 104.3273 kg

DRUGS (1)
  1. METHADONE HCL [Suspect]
     Indication: DETOXIFICATION
     Dosage: 30MG  BID  ORAL
     Route: 048
     Dates: start: 20060620, end: 20060623

REACTIONS (6)
  - DRUG TOXICITY [None]
  - DRUG WITHDRAWAL SYNDROME [None]
  - MEDICATION ERROR [None]
  - MIGRAINE [None]
  - MUSCULOSKELETAL STIFFNESS [None]
  - VOMITING [None]
